FAERS Safety Report 6125205-3 (Version None)
Quarter: 2009Q1

REPORT INFORMATION
  Report Type: 
  Country: None (occurrence: None)
  Receive Date: 20090318
  Receipt Date: 20090304
  Transmission Date: 20090719
  Serious: Yes (Hospitalization)
  Sender: FDA-Public Use
  Company Number: 8043864

PATIENT
  Age: 7 Year
  Sex: Female
  Weight: 22.5 kg

DRUGS (2)
  1. KEPPRA [Suspect]
     Indication: EPILEPSY
     Dosage: 250 MG 1/D PO
     Route: 048
     Dates: start: 20090128, end: 20090201
  2. LAMICTAL [Suspect]
     Indication: EPILEPSY
     Dosage: 50 MG 1/D PO
     Route: 048

REACTIONS (3)
  - ANXIETY [None]
  - RESTLESSNESS [None]
  - TREMOR [None]
